FAERS Safety Report 13161900 (Version 1)
Quarter: 2017Q1

REPORT INFORMATION
  Report Type: Spontaneous
  Country: US (occurrence: US)
  Receive Date: 20170130
  Receipt Date: 20170130
  Transmission Date: 20170428
  Serious: No
  Sender: FDA-Public Use
  Company Number: US-AMGEN-USASP2017011825

PATIENT
  Sex: Male

DRUGS (5)
  1. SULFASALAZINE. [Concomitant]
     Active Substance: SULFASALAZINE
     Indication: BACK DISORDER
     Dosage: 500 MG, UNK (6 TIMES A DAY)
     Route: 065
  2. ENBREL [Suspect]
     Active Substance: ETANERCEPT
     Indication: ANKYLOSING SPONDYLITIS
     Dosage: 50 MG, QWK
     Route: 065
  3. DULOXETINE. [Concomitant]
     Active Substance: DULOXETINE
     Indication: DEPRESSION
     Dosage: 90 MG, QD
     Route: 065
     Dates: start: 2016
  4. CLONAZEPAM. [Concomitant]
     Active Substance: CLONAZEPAM
     Indication: PANIC ATTACK
     Dosage: 1 MG, UNK (5 TIMES A DAY)
     Route: 065
  5. ABILIFY [Concomitant]
     Active Substance: ARIPIPRAZOLE
     Indication: PANIC ATTACK
     Dosage: 15 MG, QD
     Route: 065
     Dates: start: 2014

REACTIONS (5)
  - Back pain [Not Recovered/Not Resolved]
  - Incorrect product storage [Unknown]
  - Arthralgia [Unknown]
  - Neuralgia [Recovering/Resolving]
  - Asthenia [Unknown]

NARRATIVE: CASE EVENT DATE: 2016
